FAERS Safety Report 5501381-8 (Version None)
Quarter: 2007Q4

REPORT INFORMATION
  Report Type: 
  Country: None (occurrence: None)
  Receive Date: 20071018
  Receipt Date: 20070111
  Transmission Date: 20080405
  Serious: Yes (Other)
  Sender: FDA-Public Use
  Company Number: 2007004385

PATIENT
  Sex: Male
  Weight: 117.9 kg

DRUGS (5)
  1. NEURONTIN [Suspect]
     Indication: NEUROPATHY PERIPHERAL
     Dosage: 600 MG (600 MG, 1 IN 1 D)
     Dates: start: 20000101
  2. ZOCOR [Concomitant]
  3. ACETYLSALICYLIC ACID SRT [Concomitant]
  4. HYDROCHLOROTHIAZIDE [Concomitant]
  5. ARTHROTEC [Concomitant]

REACTIONS (8)
  - ARTHRITIS [None]
  - CARDIAC DISORDER [None]
  - HYPERCHOLESTEROLAEMIA [None]
  - HYPERTENSION [None]
  - INSOMNIA [None]
  - MUSCULOSKELETAL DISCOMFORT [None]
  - PARAESTHESIA [None]
  - PROSTATOMEGALY [None]
